FAERS Safety Report 11813606 (Version 1)
Quarter: 2015Q4

REPORT INFORMATION
  Report Type: Spontaneous
  Country: DE (occurrence: DE)
  Receive Date: 20151209
  Receipt Date: 20151209
  Transmission Date: 20160305
  Serious: Yes (Death, Other)
  Sender: FDA-Public Use
  Company Number: DE-CELGENE-DEU-2015117452

PATIENT
  Age: 43 Year
  Sex: Male

DRUGS (4)
  1. FLUDARABINE [Concomitant]
     Active Substance: FLUDARABINE PHOSPHATE
     Indication: MYELODYSPLASTIC SYNDROME
     Route: 065
  2. CYTARABINE. [Concomitant]
     Active Substance: CYTARABINE
     Indication: MYELODYSPLASTIC SYNDROME
     Route: 065
  3. TREOSULFAN [Concomitant]
     Active Substance: TREOSULFAN
     Indication: MYELODYSPLASTIC SYNDROME
     Route: 065
  4. AZACITIDINE. [Suspect]
     Active Substance: AZACITIDINE
     Indication: MYELODYSPLASTIC SYNDROME
     Dosage: 100 MILLIGRAM/SQ. METER
     Route: 065
     Dates: start: 200609

REACTIONS (5)
  - Acute myeloid leukaemia [Fatal]
  - Acute graft versus host disease in skin [Unknown]
  - Myelodysplastic syndrome [Unknown]
  - Acute graft versus host disease in liver [Unknown]
  - Acute graft versus host disease [Unknown]

NARRATIVE: CASE EVENT DATE: 201301
